FAERS Safety Report 7504796-1 (Version None)
Quarter: 2011Q2

REPORT INFORMATION
  Report Type: 
  Country: None (occurrence: None)
  Receive Date: 20110525
  Receipt Date: 20110203
  Transmission Date: 20111010
  Serious: No
  Sender: FDA-Public Use
  Company Number: US-AMGEN-USASP2011006627

PATIENT
  Age: 77 Year
  Sex: Female

DRUGS (7)
  1. ARANESP [Suspect]
     Indication: RED BLOOD CELL COUNT DECREASED
     Dosage: UNK UNK, Q3WK
     Dates: start: 20090101
  2. SIMVASTATIN [Concomitant]
  3. CALTRATE D                         /00108001/ [Concomitant]
  4. ANTIHYPERTENSIVES [Concomitant]
  5. FOSAMAX [Concomitant]
  6. LEVOTHYROXINE SODIUM [Concomitant]
  7. DIOVAN [Concomitant]

REACTIONS (6)
  - BONE LOSS [None]
  - DYSPHAGIA [None]
  - DEVICE FAILURE [None]
  - ABDOMINAL DISCOMFORT [None]
  - DYSPEPSIA [None]
  - TOOTH REPAIR [None]
